FAERS Safety Report 4532154-0 (Version None)
Quarter: 2004Q4

REPORT INFORMATION
  Report Type: 
  Country: None (occurrence: None)
  Receive Date: 20041220
  Receipt Date: 20041209
  Transmission Date: 20050328
  Serious: Yes (Hospitalization, Other)
  Sender: FDA-Public Use
  Company Number: FR-JNJFOC-20041003910

PATIENT
  Sex: Male
  Weight: 70 kg

DRUGS (7)
  1. RISPERDAL CONSTA [Suspect]
     Route: 030
  2. RISPERDAL CONSTA [Suspect]
     Indication: SCHIZOPHRENIA
     Route: 030
  3. TEMESTA [Concomitant]
     Indication: ANXIETY
  4. AKINETON [Concomitant]
     Indication: PARKINSONISM
  5. OMEPRAZOLE [Concomitant]
     Indication: GASTRITIS
  6. TEGRETOL [Concomitant]
     Indication: BIPOLAR DISORDER
  7. SULFARLEM [Concomitant]

REACTIONS (4)
  - ASPARTATE AMINOTRANSFERASE INCREASED [None]
  - BLOOD CREATINE PHOSPHOKINASE INCREASED [None]
  - GRAND MAL CONVULSION [None]
  - MYOGLOBIN BLOOD INCREASED [None]
